FAERS Safety Report 8839396 (Version 1)
Quarter: 2012Q4

REPORT INFORMATION
  Report Type: Spontaneous
  Country: US (occurrence: None)
  Receive Date: 20121012
  Receipt Date: 20121012
  Transmission Date: 20130627
  Serious: Yes (Disabling, Other)
  Sender: FDA-Public Use
  Company Number: None

PATIENT
  Age: 48 Year
  Sex: Male
  Weight: 79.38 kg

DRUGS (1)
  1. LEVOFLOXACIN [Suspect]
     Indication: PNEUMONIA
     Route: 048
     Dates: start: 20120914, end: 20120917

REACTIONS (5)
  - Pain in extremity [None]
  - Musculoskeletal pain [None]
  - Grip strength decreased [None]
  - Hypoaesthesia [None]
  - Inadequate analgesia [None]
